FAERS Safety Report 21954640 (Version 2)
Quarter: 2025Q1

REPORT INFORMATION
  Report Type: Spontaneous
  Country: US (occurrence: US)
  Receive Date: 20230205
  Receipt Date: 20250117
  Transmission Date: 20250409
  Serious: No
  Sender: SANOFI AVENTIS
  Company Number: US-SA-SAC20230202001393

PATIENT
  Age: 56 Year
  Sex: Female

DRUGS (46)
  1. DUPIXENT [Suspect]
     Active Substance: DUPILUMAB
     Indication: Neurodermatitis
     Route: 058
  2. DUPIXENT [Suspect]
     Active Substance: DUPILUMAB
     Indication: Pruritus
     Dosage: 300 MG, QOW
     Route: 058
  3. AMLODIPINE [Concomitant]
     Active Substance: AMLODIPINE BESYLATE
  4. CALCITRIOL [Concomitant]
     Active Substance: CALCITRIOL
  5. HYDROXYZINE [Concomitant]
     Active Substance: HYDROXYZINE HYDROCHLORIDE
  6. JARDIANCE [Concomitant]
     Active Substance: EMPAGLIFLOZIN
  7. LANTUS SOLOSTAR [Concomitant]
     Active Substance: INSULIN GLARGINE
  8. LOSARTAN POTASSIUM [Concomitant]
     Active Substance: LOSARTAN POTASSIUM
  9. MIRTAZAPINE [Concomitant]
     Active Substance: MIRTAZAPINE
  10. MYRBETRIQ [Concomitant]
     Active Substance: MIRABEGRON
  11. NOVOLOG [Concomitant]
     Active Substance: INSULIN ASPART
  12. FERROUS SULFATE [Concomitant]
     Active Substance: FERROUS SULFATE
  13. OMEPRAZOLE [Concomitant]
     Active Substance: OMEPRAZOLE
  14. ROPINIROLE [Concomitant]
     Active Substance: ROPINIROLE
  15. TOPIRAMATE [Concomitant]
     Active Substance: TOPIRAMATE
  16. VENLAFAXINE [Concomitant]
     Active Substance: VENLAFAXINE HYDROCHLORIDE
  17. LYRICA [Concomitant]
     Active Substance: PREGABALIN
  18. ASPIRIN [Concomitant]
     Active Substance: ASPIRIN
  19. UBRELVY [Concomitant]
     Active Substance: UBROGEPANT
  20. THYROID [Concomitant]
     Active Substance: LEVOTHYROXINE\LIOTHYRONINE
  21. CELEBREX [Concomitant]
     Active Substance: CELECOXIB
  22. VALTREX [Concomitant]
     Active Substance: VALACYCLOVIR HYDROCHLORIDE
  23. COLACE [Concomitant]
     Active Substance: DOCUSATE SODIUM
  24. CYANOCOBALAMIN [Concomitant]
     Active Substance: CYANOCOBALAMIN
  25. LIPITOR [Concomitant]
     Active Substance: ATORVASTATIN CALCIUM
  26. FLUOCINOLONE [Concomitant]
     Active Substance: FLUOCINOLONE
  27. FLONASE ALLERGY RELIEF [Concomitant]
     Active Substance: FLUTICASONE PROPIONATE
  28. MOUNJARO [Concomitant]
     Active Substance: TIRZEPATIDE
  29. VITAMIN D3 [Concomitant]
     Active Substance: CHOLECALCIFEROL
  30. VITAMINS [Concomitant]
     Active Substance: VITAMINS
  31. PRILOSEC OTC [Concomitant]
     Active Substance: OMEPRAZOLE MAGNESIUM
  32. RESTASIS [Concomitant]
     Active Substance: CYCLOSPORINE
  33. EPINEPHRINE [Concomitant]
     Active Substance: EPINEPHRINE
  34. CYMBALTA [Concomitant]
     Active Substance: DULOXETINE HYDROCHLORIDE
  35. ROPINIROLE HYDROCHLORIDE [Concomitant]
     Active Substance: ROPINIROLE HYDROCHLORIDE
  36. HYDROCODONE [Concomitant]
     Active Substance: HYDROCODONE
  37. MYRBETRIQ [Concomitant]
     Active Substance: MIRABEGRON
  38. PROBIOTICS NOS [Concomitant]
     Active Substance: PROBIOTICS NOS
  39. DOXYCYCLINE [Concomitant]
     Active Substance: DOXYCYCLINE
  40. THYROID [Concomitant]
     Active Substance: LEVOTHYROXINE\LIOTHYRONINE
  41. AMLODIPINE BESYLATE [Concomitant]
     Active Substance: AMLODIPINE BESYLATE
  42. LOSARTAN POTASSIUM [Concomitant]
     Active Substance: LOSARTAN POTASSIUM
  43. HYDROCHLOROTHIAZIDE [Concomitant]
     Active Substance: HYDROCHLOROTHIAZIDE
  44. SPIRONOLACTONE [Concomitant]
     Active Substance: SPIRONOLACTONE
  45. METHOCARBAMOL [Concomitant]
     Active Substance: METHOCARBAMOL
  46. SPIRONOLACTONE [Concomitant]
     Active Substance: SPIRONOLACTONE

REACTIONS (3)
  - Blood glucose increased [Not Recovered/Not Resolved]
  - Pruritus [Not Recovered/Not Resolved]
  - Surgery [Not Recovered/Not Resolved]

NARRATIVE: CASE EVENT DATE: 20250106
